FAERS Safety Report 24537733 (Version 2)
Quarter: 2025Q1

REPORT INFORMATION
  Report Type: Spontaneous
  Country: FR (occurrence: FR)
  Receive Date: 20241023
  Receipt Date: 20250109
  Transmission Date: 20250408
  Serious: Yes (Death, Other)
  Sender: AUROBINDO
  Company Number: FR-AFSSAPS-AM2024000828

PATIENT
  Sex: Male
  Weight: 2.98 kg

DRUGS (5)
  1. LIDOCAINE [Suspect]
     Active Substance: LIDOCAINE
     Indication: Local anaesthesia
     Route: 065
     Dates: start: 20221213, end: 20221213
  2. REPEVAX [Suspect]
     Active Substance: DIPHTHERIA AND TETANUS TOXOIDS AND ACELLULAR PERTUSSIS ADSORBED AND INACTIVATED POLIOVIRUS VACCINE
     Indication: Immunisation
     Route: 065
     Dates: start: 20221025
  3. ROPIVACAINE [Suspect]
     Active Substance: ROPIVACAINE
     Indication: Spinal anaesthesia
     Route: 065
     Dates: start: 20221213, end: 20221213
  4. SUFENTANIL [Suspect]
     Active Substance: SUFENTANIL
     Indication: Spinal anaesthesia
     Route: 065
     Dates: start: 20221213, end: 20221213
  5. XYLOCAINE [Suspect]
     Active Substance: LIDOCAINE HYDROCHLORIDE
     Indication: Local anaesthesia
     Route: 065
     Dates: start: 20221213, end: 20221213

REACTIONS (2)
  - Foetal death [Fatal]
  - Exposure during pregnancy [Fatal]

NARRATIVE: CASE EVENT DATE: 20221213
